FAERS Safety Report 24582229 (Version 7)
Quarter: 2025Q1

REPORT INFORMATION
  Report Type: Spontaneous
  Country: JP (occurrence: JP)
  Receive Date: 20241105
  Receipt Date: 20250221
  Transmission Date: 20250409
  Serious: Yes (Hospitalization, Other)
  Sender: ALEXION PHARMACEUTICALS
  Company Number: JP-ASTRAZENECA-240081697_010520_P_1

PATIENT
  Age: 77 Year
  Weight: 45 kg

DRUGS (20)
  1. FASLODEX [Suspect]
     Active Substance: FULVESTRANT
  2. FASLODEX [Suspect]
     Active Substance: FULVESTRANT
  3. FASLODEX [Suspect]
     Active Substance: FULVESTRANT
  4. FASLODEX [Suspect]
     Active Substance: FULVESTRANT
  5. FASLODEX [Suspect]
     Active Substance: FULVESTRANT
  6. FASLODEX [Suspect]
     Active Substance: FULVESTRANT
  7. TRUQAP [Suspect]
     Active Substance: CAPIVASERTIB
     Dosage: 400 MILLIGRAM, BID
  8. TRUQAP [Suspect]
     Active Substance: CAPIVASERTIB
     Dosage: DOSE UNKNOWN, 4 DAYS IN A ROW, FOLLOWED BY 3 DAYS OFF.
  9. TAMOXIFEN [Concomitant]
     Active Substance: TAMOXIFEN
     Indication: Breast cancer
     Route: 065
  10. TOREMIFENE [Concomitant]
     Active Substance: TOREMIFENE
     Indication: Breast cancer
     Route: 065
  11. AFINITOR [Concomitant]
     Active Substance: EVEROLIMUS
     Indication: Breast cancer
     Route: 065
  12. AROMASIN [Concomitant]
     Active Substance: EXEMESTANE
     Indication: Breast cancer
     Route: 065
  13. DENOSUMAB [Concomitant]
     Active Substance: DENOSUMAB
     Indication: Breast cancer
  14. IBRANCE [Concomitant]
     Active Substance: PALBOCICLIB
     Indication: Breast cancer
  15. VERZENIO [Concomitant]
     Active Substance: ABEMACICLIB
     Indication: Breast cancer
  16. PACLITAXEL [Concomitant]
     Active Substance: PACLITAXEL
     Indication: Breast cancer
     Route: 065
  17. AVASTIN [Concomitant]
     Active Substance: BEVACIZUMAB
     Indication: Breast cancer
     Route: 065
  18. HALAVEN [Concomitant]
     Active Substance: ERIBULIN MESYLATE
     Indication: Breast cancer
     Route: 065
  19. HALAVEN [Concomitant]
     Active Substance: ERIBULIN MESYLATE
     Route: 065
  20. HALAVEN [Concomitant]
     Active Substance: ERIBULIN MESYLATE
     Route: 065

REACTIONS (11)
  - Hyperglycaemia [Recovered/Resolved]
  - Erythema multiforme [Recovered/Resolved]
  - Acute kidney injury [Recovered/Resolved]
  - Blood pressure decreased [Recovered/Resolved]
  - Interstitial lung disease [Recovered/Resolved]
  - Decreased appetite [Recovered/Resolved]
  - Oral disorder [Unknown]
  - Malaise [Recovering/Resolving]
  - Vomiting [Recovering/Resolving]
  - Pyrexia [Recovered/Resolved]
  - Dehydration [Recovered/Resolved]
